FAERS Safety Report 12787681 (Version 1)
Quarter: 2016Q3

REPORT INFORMATION
  Report Type: Spontaneous
  Country: US (occurrence: US)
  Receive Date: 20160928
  Receipt Date: 20160928
  Transmission Date: 20161109
  Serious: No
  Sender: FDA-Public Use
  Company Number: US-GLAXOSMITHKLINE-US2016GSK139074

PATIENT
  Sex: Female

DRUGS (2)
  1. LANSOPRAZOLE PROLONGED-RELEASE CAPSULE [Suspect]
     Active Substance: LANSOPRAZOLE
     Indication: GASTROOESOPHAGEAL REFLUX DISEASE
     Dosage: 30 DF, UNK
     Dates: start: 2006
  2. ADVAIR DISKUS [Suspect]
     Active Substance: FLUTICASONE PROPIONATE\SALMETEROL XINAFOATE
     Indication: ASTHMA
     Dosage: UNK
     Dates: start: 2008

REACTIONS (3)
  - Somnolence [Not Recovered/Not Resolved]
  - Vision blurred [Unknown]
  - Swelling [Not Recovered/Not Resolved]
